FAERS Safety Report 7051394-2 (Version None)
Quarter: 2010Q4

REPORT INFORMATION
  Report Type: 
  Country: None (occurrence: None)
  Receive Date: 20101013
  Receipt Date: 20101005
  Transmission Date: 20110411
  Serious: Yes (Other)
  Sender: FDA-Public Use
  Company Number: 2010090055

PATIENT
  Age: 15 Year
  Sex: Male
  Weight: 62.5964 kg

DRUGS (11)
  1. FELBATOL [Suspect]
     Indication: MYOCLONIC EPILEPSY
     Dosage: SEE IMAGE
     Route: 048
     Dates: start: 20100802, end: 20100808
  2. FELBATOL [Suspect]
     Indication: MYOCLONIC EPILEPSY
     Dosage: SEE IMAGE
     Route: 048
     Dates: start: 20100809, end: 20100820
  3. FELBATOL [Suspect]
     Indication: MYOCLONIC EPILEPSY
     Dosage: SEE IMAGE
     Route: 048
     Dates: start: 20100821, end: 20100821
  4. FELBATOL [Suspect]
     Indication: MYOCLONIC EPILEPSY
     Dosage: SEE IMAGE
     Route: 048
     Dates: start: 20100822, end: 20100828
  5. FELBATOL [Suspect]
     Indication: MYOCLONIC EPILEPSY
     Dosage: SEE IMAGE
     Route: 048
     Dates: start: 20100829, end: 20100831
  6. FELBATOL [Suspect]
     Indication: MYOCLONIC EPILEPSY
     Dosage: SEE IMAGE
     Route: 048
     Dates: start: 20100901, end: 20100906
  7. FELBATOL [Suspect]
     Indication: MYOCLONIC EPILEPSY
     Dosage: SEE IMAGE
     Route: 048
     Dates: start: 20100907, end: 20100907
  8. FELBATOL [Suspect]
     Indication: MYOCLONIC EPILEPSY
     Dosage: SEE IMAGE
     Route: 048
     Dates: start: 20100908, end: 20100911
  9. FELBATOL [Suspect]
     Indication: MYOCLONIC EPILEPSY
     Dosage: SEE IMAGE
     Route: 048
     Dates: start: 20100912, end: 20100916
  10. FELBATOL [Suspect]
     Indication: MYOCLONIC EPILEPSY
     Dosage: SEE IMAGE
     Route: 048
     Dates: start: 20100917
  11. FRISIUM (CLOBAZAM) [Concomitant]

REACTIONS (4)
  - CONDITION AGGRAVATED [None]
  - MYOCLONIC EPILEPSY [None]
  - PETIT MAL EPILEPSY [None]
  - PSYCHOMOTOR HYPERACTIVITY [None]
